FAERS Safety Report 19290795 (Version 3)
Quarter: 2021Q2

REPORT INFORMATION
  Report Type: Report from Study
  Country: FR (occurrence: FR)
  Receive Date: 20210522
  Receipt Date: 20210629
  Transmission Date: 20210717
  Serious: Yes (Hospitalization, Other)
  Sender: FDA-Public Use
  Company Number: FR-BRISTOL-MYERS SQUIBB COMPANY-BMS-2021-048083

PATIENT
  Age: 61 Year
  Sex: Female
  Weight: 52 kg

DRUGS (17)
  1. NIVOLUMAB [Suspect]
     Active Substance: NIVOLUMAB
     Dosage: MAINTANENCE 1
     Route: 065
     Dates: start: 20200625
  2. NIVOLUMAB [Suspect]
     Active Substance: NIVOLUMAB
     Dosage: MAINTANENCE 3
     Route: 065
     Dates: start: 20200820
  3. NIVOLUMAB [Suspect]
     Active Substance: NIVOLUMAB
     Dosage: MAINTANENCE 4
     Route: 065
     Dates: start: 20200914
  4. DOLIPRANE [Concomitant]
     Active Substance: ACETAMINOPHEN
     Indication: PRODUCT USED FOR UNKNOWN INDICATION
     Dosage: AS NEEDED
     Route: 065
  5. NIVOLUMAB [Suspect]
     Active Substance: NIVOLUMAB
     Dosage: CYCLE 3 DAY 43, 360 MG
     Route: 065
     Dates: start: 20200521
  6. NIVOLUMAB [Suspect]
     Active Substance: NIVOLUMAB
     Dosage: CYCLE 1 DAY 1, 360 MG
     Route: 065
     Dates: start: 20200407
  7. NIVOLUMAB [Suspect]
     Active Substance: NIVOLUMAB
     Dosage: MAINTANENCE 2
     Route: 065
     Dates: start: 20200723
  8. CISPLATIN. [Suspect]
     Active Substance: CISPLATIN
     Dosage: 100 MG/M2 ON DAY 42
     Route: 065
  9. COTAREG [Concomitant]
     Active Substance: HYDROCHLOROTHIAZIDE\VALSARTAN
     Indication: PRODUCT USED FOR UNKNOWN INDICATION
     Dosage: 160 / 12.5 ONCE IN THE MORNING
     Route: 065
  10. NIVOLUMAB [Suspect]
     Active Substance: NIVOLUMAB
     Indication: SQUAMOUS CELL CARCINOMA OF HEAD AND NECK
     Dosage: LEAD IN PHASE D?14 TO D10, 240 MG
     Route: 065
     Dates: start: 20200326
  11. NIVOLUMAB [Suspect]
     Active Substance: NIVOLUMAB
     Dosage: MAINTANENCE 6
     Route: 065
     Dates: start: 20201109
  12. CISPLATIN. [Suspect]
     Active Substance: CISPLATIN
     Indication: SQUAMOUS CELL CARCINOMA OF HEAD AND NECK
     Dosage: CYCLE 1 DAY 1, 100 MG/M2 (150 MG)
     Route: 065
     Dates: start: 20200407
  13. NIVOLUMAB [Suspect]
     Active Substance: NIVOLUMAB
     Dosage: MAINTANENCE 5
     Route: 065
     Dates: start: 20201014
  14. CISPLATIN. [Suspect]
     Active Substance: CISPLATIN
     Dosage: CYCLE 3 DAY 43, 100 MG/M2 (150 MG)
     Route: 065
     Dates: start: 20200521
  15. AMLOR [Concomitant]
     Active Substance: AMLODIPINE BESYLATE
     Indication: PRODUCT USED FOR UNKNOWN INDICATION
     Dosage: 5 MG ONCE IN THE MORNING
     Route: 065
  16. CISPLATIN. [Suspect]
     Active Substance: CISPLATIN
     Dosage: CYCLE 2 DAY 22, 100 MG/M2 (150 MG)
     Route: 065
     Dates: start: 20200428
  17. NIVOLUMAB [Suspect]
     Active Substance: NIVOLUMAB
     Dosage: CYCLE 2 DAY 22, 360 MG
     Route: 065
     Dates: start: 20200428

REACTIONS (2)
  - Hypothyroidism [Unknown]
  - Lichenoid keratosis [Unknown]

NARRATIVE: CASE EVENT DATE: 20200519
